FAERS Safety Report 23124989 (Version 1)
Quarter: 2023Q4

REPORT INFORMATION
  Report Type: Spontaneous
  Country: US (occurrence: US)
  Receive Date: 20231030
  Receipt Date: 20231030
  Transmission Date: 20240110
  Serious: No
  Sender: FDA-Public Use
  Company Number: US-BRISTOL-MYERS SQUIBB COMPANY-2023-153223

PATIENT
  Age: 74 Year
  Sex: Male
  Weight: 103.87 kg

DRUGS (1)
  1. REVLIMID [Suspect]
     Active Substance: LENALIDOMIDE
     Indication: Plasma cell myeloma
     Dosage: FREQUENCY: 2 WKS ON/ 1 WK OFF
     Route: 048
     Dates: start: 20230602, end: 20231025

REACTIONS (6)
  - Drug intolerance [Unknown]
  - Abdominal pain [Unknown]
  - Constipation [Unknown]
  - Rash [Recovered/Resolved]
  - Fatigue [Unknown]
  - Off label use [Unknown]
